FAERS Safety Report 18308337 (Version 2)
Quarter: 2020Q4

REPORT INFORMATION
  Report Type: Report from Study
  Country: US (occurrence: US)
  Receive Date: 20200924
  Receipt Date: 20201103
  Transmission Date: 20210113
  Serious: Yes (Hospitalization)
  Sender: FDA-Public Use
  Company Number: US-PFIZER INC-2020363856

PATIENT
  Age: 55 Year
  Sex: Male
  Weight: 102.4 kg

DRUGS (2)
  1. BINIMETINIB [Suspect]
     Active Substance: BINIMETINIB
     Indication: PROSTATE CANCER
     Dosage: 60 MG, 2X/DAY
     Route: 048
     Dates: start: 20200724, end: 20200914
  2. ENCORAFENIB [Suspect]
     Active Substance: ENCORAFENIB
     Indication: PROSTATE CANCER
     Dosage: 450 MG, 1X/DAY
     Route: 048
     Dates: start: 20200724, end: 20200914

REACTIONS (3)
  - Acute kidney injury [Recovered/Resolved]
  - Vomiting [Recovered/Resolved]
  - Diarrhoea [Recovered/Resolved]

NARRATIVE: CASE EVENT DATE: 20200915
